FAERS Safety Report 10669484 (Version 2)
Quarter: 2015Q3

REPORT INFORMATION
  Report Type: Report from Study
  Country: US (occurrence: US)
  Receive Date: 20141222
  Receipt Date: 20150819
  Transmission Date: 20151125
  Serious: Yes (Hospitalization, Other)
  Sender: FDA-Public Use
  Company Number: US-CELGENE-USA-2014122199

PATIENT
  Age: 68 Year
  Sex: Male
  Weight: 50.2 kg

DRUGS (3)
  1. MLN8237 [Suspect]
     Active Substance: ALISERTIB
     Indication: DIFFUSE LARGE B-CELL LYMPHOMA
     Route: 048
     Dates: start: 20141007, end: 20141014
  2. ROMIDEPSIN [Suspect]
     Active Substance: ROMIDEPSIN
     Indication: DIFFUSE LARGE B-CELL LYMPHOMA
     Dosage: OVER 4 HOURS ON DAYS 1-8
     Route: 041
     Dates: start: 20141007, end: 20141014
  3. ROMIDEPSIN [Suspect]
     Active Substance: ROMIDEPSIN
     Indication: ADULT T-CELL LYMPHOMA/LEUKAEMIA

REACTIONS (5)
  - Anaemia [Recovered/Resolved]
  - Dehydration [Unknown]
  - Fatigue [Recovered/Resolved]
  - Epistaxis [Recovered/Resolved]
  - Platelet count decreased [Recovered/Resolved]

NARRATIVE: CASE EVENT DATE: 20141017
